FAERS Safety Report 22038970 (Version 3)
Quarter: 2023Q2

REPORT INFORMATION
  Report Type: Spontaneous
  Country: US (occurrence: US)
  Receive Date: 20230227
  Receipt Date: 20230630
  Transmission Date: 20230721
  Serious: Yes (Hospitalization)
  Sender: FDA-Public Use
  Company Number: US-SA-SAC20230227000377

PATIENT
  Age: 66 Year
  Sex: Female

DRUGS (1)
  1. DUPIXENT [Suspect]
     Active Substance: DUPILUMAB
     Dosage: DOSE OR AMOUNT: 300MG FREQUENCY: OTHER
     Route: 058
     Dates: start: 202103

REACTIONS (2)
  - Asthma [Unknown]
  - COVID-19 [Unknown]

NARRATIVE: CASE EVENT DATE: 20230223
